FAERS Safety Report 8060944-9 (Version None)
Quarter: 2012Q1

REPORT INFORMATION
  Report Type: 
  Country: None (occurrence: None)
  Receive Date: 20120120
  Receipt Date: 20120117
  Transmission Date: 20120608
  Serious: Yes (Other)
  Sender: FDA-Public Use
  Company Number: US-ASTRAZENECA-2012SE03197

PATIENT
  Age: 80 Year
  Sex: Female
  Weight: 60.8 kg

DRUGS (3)
  1. NORCO [Concomitant]
     Indication: PAIN
     Dosage: 10MG/325MG
  2. SEROQUEL XR [Suspect]
     Indication: ALCOHOL USE
     Route: 048
     Dates: start: 20120101
  3. LASIX [Concomitant]

REACTIONS (4)
  - CONFUSIONAL STATE [None]
  - CONDITION AGGRAVATED [None]
  - TREMOR [None]
  - DYSKINESIA [None]
